FAERS Safety Report 7410139-4 (Version None)
Quarter: 2011Q2

REPORT INFORMATION
  Report Type: 
  Country: None (occurrence: None)
  Receive Date: 20110412
  Receipt Date: 20110330
  Transmission Date: 20111010
  Serious: Yes (Hospitalization)
  Sender: FDA-Public Use
  Company Number: CA-JNJFOC-20110312860

PATIENT
  Sex: Male
  Weight: 80 kg

DRUGS (4)
  1. METFORMIN HCL [Concomitant]
     Route: 048
  2. REMICADE [Suspect]
     Indication: CROHN'S DISEASE
     Route: 042
  3. REMICADE [Suspect]
     Route: 042
  4. IMURAN [Concomitant]

REACTIONS (3)
  - BODY TEMPERATURE INCREASED [None]
  - DIARRHOEA HAEMORRHAGIC [None]
  - PAIN [None]
